FAERS Safety Report 6836792-1 (Version None)
Quarter: 2010Q3

REPORT INFORMATION
  Report Type: 
  Country: None (occurrence: None)
  Receive Date: 20100708
  Receipt Date: 20100624
  Transmission Date: 20110219
  Serious: Yes (Hospitalization)
  Sender: FDA-Public Use
  Company Number: ALK_01335_2010

PATIENT
  Sex: Female

DRUGS (11)
  1. VIVITROL [Suspect]
     Indication: ALCOHOLISM
     Dosage: 380 MG 1X/MONTH INTRAMUSCULAR
     Route: 030
     Dates: start: 20091201
  2. REMERON [Concomitant]
  3. VENLAFAXINE [Concomitant]
  4. METFORMIN [Concomitant]
  5. LISINOPRIL [Concomitant]
  6. LORAZEPAM [Concomitant]
  7. ALENDRONATE SODIUM [Concomitant]
  8. FOLIC ACID [Concomitant]
  9. HYDROCHLOROTHIAZIDE [Concomitant]
  10. CRITICAL [Concomitant]
  11. VITAMIN B-12 [Concomitant]

REACTIONS (5)
  - CYST [None]
  - FOOT FRACTURE [None]
  - INJECTION SITE MASS [None]
  - PANCREATITIS [None]
  - URTICARIA [None]
